FAERS Safety Report 7190468-2 (Version None)
Quarter: 2010Q4

REPORT INFORMATION
  Report Type: 
  Country: None (occurrence: None)
  Receive Date: 20101210
  Receipt Date: 20101202
  Transmission Date: 20110411
  Serious: Yes (Disabling)
  Sender: FDA-Public Use
  Company Number: 2010MA005011

PATIENT
  Age: 62 Year
  Sex: Female

DRUGS (11)
  1. METFORMIN HYDROCHLORIDE [Suspect]
     Indication: DIABETES MELLITUS
     Dosage: 1 GR;BID;PO
     Route: 048
     Dates: end: 20100929
  2. ACETYLSALICYLIC ACID [Concomitant]
  3. BENDROFLUMETHIAZIDE [Concomitant]
  4. BISOPROLOL [Concomitant]
  5. FLUOXETINE [Concomitant]
  6. GLICLAZIDE [Concomitant]
  7. ROSIGLITAZONE [Concomitant]
  8. GLYCERYL TRINITRATE [Concomitant]
  9. SIMVASTATIN [Concomitant]
  10. ISOTARD XL [Concomitant]
  11. EZETIMIBE [Concomitant]

REACTIONS (1)
  - FAECAL INCONTINENCE [None]
